FAERS Safety Report 16881248 (Version 3)
Quarter: 2023Q1

REPORT INFORMATION
  Report Type: Report from Study
  Country: FR (occurrence: FR)
  Receive Date: 20191003
  Receipt Date: 20230321
  Transmission Date: 20230418
  Serious: Yes (Hospitalization)
  Sender: FDA-Public Use
  Company Number: FR-SHIRE-FR201931800

PATIENT
  Age: 2 Year
  Sex: Male

DRUGS (16)
  1. IDURSULFASE [Suspect]
     Active Substance: IDURSULFASE
     Indication: Mucopolysaccharidosis II
     Dosage: 05 MILLIGRAM/KILOGRAM, 1X/WEEK
     Route: 042
     Dates: start: 20170823
  2. OFLOXACIN [Concomitant]
     Active Substance: OFLOXACIN
     Indication: Otorrhoea
     Dosage: UNK
     Route: 048
     Dates: start: 20180916, end: 20180922
  3. OFLOXACIN [Concomitant]
     Active Substance: OFLOXACIN
     Dosage: UNK
     Route: 001
     Dates: start: 20180917, end: 20180924
  4. AMOXICILLIN [Concomitant]
     Active Substance: AMOXICILLIN
     Indication: Prophylaxis
     Dosage: UNK
     Route: 048
     Dates: start: 20190917, end: 20190922
  5. AMOXICILLIN [Concomitant]
     Active Substance: AMOXICILLIN
     Indication: Pyrexia
     Dosage: UNK
     Route: 048
     Dates: start: 20190925, end: 20190929
  6. ACETAMINOPHEN [Concomitant]
     Active Substance: ACETAMINOPHEN
     Indication: Pyrexia
     Dosage: UNK
     Route: 048
     Dates: start: 20190917
  7. ACETAMINOPHEN [Concomitant]
     Active Substance: ACETAMINOPHEN
     Indication: Pain
     Dosage: UNK
     Route: 042
     Dates: start: 20191007, end: 20191016
  8. NALBUPHINE [Concomitant]
     Active Substance: NALBUPHINE
     Indication: Pain
     Dosage: UNK
     Route: 042
     Dates: start: 20191003, end: 20191021
  9. GLUCOSE, LIQUID\POTASSIUM CHLORIDE\SODIUM CHLORIDE [Concomitant]
     Active Substance: GLUCOSE, LIQUID\POTASSIUM CHLORIDE\SODIUM CHLORIDE
     Indication: Electrolyte imbalance
     Dosage: UNK
     Route: 042
     Dates: start: 20191004, end: 20191006
  10. PHLOROGLUCINOL [Concomitant]
     Active Substance: PHLOROGLUCINOL
     Indication: Product used for unknown indication
     Dosage: UNK
     Route: 065
     Dates: start: 20191005, end: 20191027
  11. METRONIDAZOLE [Concomitant]
     Active Substance: METRONIDAZOLE
     Indication: Infection prophylaxis
     Dosage: UNK
     Route: 042
     Dates: start: 20191007, end: 20191009
  12. RIFAMPIN [Concomitant]
     Active Substance: RIFAMPIN
     Dosage: UNK
     Route: 042
     Dates: start: 20191009, end: 20191023
  13. VANCOMYCIN [Concomitant]
     Active Substance: VANCOMYCIN
     Indication: Prophylaxis
     Dosage: UNK
     Route: 042
     Dates: start: 20191009, end: 20191010
  14. DAPTOMYCIN [Concomitant]
     Active Substance: DAPTOMYCIN
     Indication: Infection
     Dosage: UNK
     Route: 042
     Dates: start: 20191011
  15. POLARAMINE [Concomitant]
     Active Substance: DEXCHLORPHENIRAMINE MALEATE
     Dosage: UNK
     Route: 042
     Dates: start: 20191014
  16. ATARAX [Concomitant]
     Active Substance: HYDROXYZINE HYDROCHLORIDE
     Indication: Anxiety
     Dosage: UNK
     Route: 048
     Dates: start: 20191016

REACTIONS (2)
  - Nasopharyngitis [Recovered/Resolved]
  - Pyrexia [Recovered/Resolved]

NARRATIVE: CASE EVENT DATE: 20190311
